FAERS Safety Report 9008188 (Version 1)
Quarter: 2012Q4

REPORT INFORMATION
  Report Type: Spontaneous
  Country: FR (occurrence: None)
  Receive Date: 20121227
  Receipt Date: 20121227
  Transmission Date: 20130627
  Serious: Yes (Hospitalization)
  Sender: FDA-Public Use
  Company Number: 7182365

PATIENT
  Age: 75 Year
  Sex: Female

DRUGS (9)
  1. STAGID [Suspect]
     Indication: DRUG USE FOR UNKNOWN INDICATION
     Route: 048
     Dates: end: 20121019
  2. LEVOTHYROX [Suspect]
     Indication: DRUG USE FOR UNKNOWN INDICATION
     Route: 048
  3. SEROPLEX (ESCITALOPRAM OXALATE) (ESCITALOPRAM) [Concomitant]
  4. KARDEGIC (ACETYLSALICYLIC LYSINE) (ACETYLSALICYLATE LYSINE) [Concomitant]
  5. SINGULAIR (MONTELUKAST) (TABLET) (MONTELUKAST) [Concomitant]
  6. ZOLPIDEM (ZOLPIDEM TARTRATE) [Concomitant]
  7. ALDACTONE (SPIRONOLACTONE) [Concomitant]
  8. BRICANYL (TERBUTALINE SULFATE) [Concomitant]
  9. SPECIAFOLDINE (FOLIC ACID) UNKNOWN [Concomitant]

REACTIONS (3)
  - Hypokalaemia [None]
  - Diarrhoea [None]
  - Overdose [None]
